FAERS Safety Report 4354478-2 (Version None)
Quarter: 2004Q2

REPORT INFORMATION
  Report Type: 
  Country: None (occurrence: None)
  Receive Date: 20040503
  Receipt Date: 20040421
  Transmission Date: 20050107
  Serious: Yes (Hospitalization, Other)
  Sender: FDA-Public Use
  Company Number: JP-JNJFOC-20030805016

PATIENT
  Age: 38 Year
  Sex: Female
  Weight: 54.5 kg

DRUGS (22)
  1. REMICADE [Suspect]
     Indication: ANAL FISTULA
     Dosage: 230 + 275 MG, 1 IN 1 AS NECESSARY, INTRAVENOUS DRIP
     Route: 041
     Dates: start: 20030603, end: 20030603
  2. REMICADE [Suspect]
     Indication: ANAL FISTULA
     Dosage: 230 + 275 MG, 1 IN 1 AS NECESSARY, INTRAVENOUS DRIP
     Route: 041
     Dates: start: 20030701, end: 20030701
  3. REMICADE [Suspect]
     Indication: ANAL FISTULA
     Dosage: 230 + 275 MG, 1 IN 1 AS NECESSARY, INTRAVENOUS DRIP
     Route: 041
     Dates: start: 20030910, end: 20030910
  4. PREDNISOLONE [Suspect]
     Indication: CROHN'S DISEASE
     Dosage: 10 MG, 1 IN 1 DAY, ORAL
     Route: 048
     Dates: start: 20030219
  5. IMMUNOSUPPRESANT (UNKNOWN) IMMUNOSUPPRESSIVE AGENTS [Concomitant]
  6. PENTASA (TABLETS) MESALAZINE) TABLETS [Concomitant]
  7. RANIRABITOO (ALL OTHER THERAPEUTIC PRODUCTS) TABLETS [Concomitant]
  8. TENORMIN [Concomitant]
  9. WYPAX (LORAZEPAM) TABLETS [Concomitant]
  10. OMEPRAZOLE (OMEPRAZOLE) TABLETS [Concomitant]
  11. DASEN (SERRAPEPTASE) TABLETS [Concomitant]
  12. PHELLOBERIN-A (ALL OTHER THERAPEUTIC PRODUCTS) TABLETS [Concomitant]
  13. EURODIN (ESTAZOLAM) TABLETS [Concomitant]
  14. ALESION (EPINASTINE HYDROCHLORIDE) TABLETS [Concomitant]
  15. BIOFERMIN (BIOFERMIN) POWDER [Concomitant]
  16. KYORYOKU POSUCHIRIZAN (ALL OTHER THERAPEUTIC PRODUCTS) OINTMENT [Concomitant]
  17. PN TWIN (PN TWIN) INJECTION [Concomitant]
  18. SOLDEM 3A (SOLDEM 3A) INJECTION [Concomitant]
  19. LANIRAPID (METILDIGOXIN) UNKNOWN [Concomitant]
  20. DASEN (SERRAPEPTASE) UNKNOWN [Concomitant]
  21. POSTERISAN FORTE (POSTERISAN FORTE) OINTMENT [Concomitant]
  22. TOTAL PARENTERAL NUTRITION (POLYVINYL ALCOHOL) [Concomitant]

REACTIONS (7)
  - ABDOMINAL PAIN [None]
  - CATHETER RELATED INFECTION [None]
  - CHILLS [None]
  - ENDOCARDITIS [None]
  - ENTEROCUTANEOUS FISTULA [None]
  - SEPSIS [None]
  - STAPHYLOCOCCAL BACTERAEMIA [None]
